FAERS Safety Report 10402052 (Version 1)
Quarter: 2014Q3

REPORT INFORMATION
  Report Type: Spontaneous
  Country: GB (occurrence: GB)
  Receive Date: 20140822
  Receipt Date: 20140822
  Transmission Date: 20150326
  Serious: Yes (Other)
  Sender: FDA-Public Use
  Company Number: GB-MYLAN-2014M1002181

PATIENT

DRUGS (2)
  1. KETAMINE [Suspect]
     Active Substance: KETAMINE
     Indication: OFF LABEL USE
  2. KETAMINE [Suspect]
     Active Substance: KETAMINE
     Indication: FACIAL PAIN
     Route: 065

REACTIONS (4)
  - Liver function test abnormal [Unknown]
  - Hepatic fibrosis [None]
  - Hepatic cirrhosis [Unknown]
  - Biliary dilatation [Unknown]
